FAERS Safety Report 7360385-3 (Version None)
Quarter: 2011Q1

REPORT INFORMATION
  Report Type: 
  Country: None (occurrence: None)
  Receive Date: 20110210
  Receipt Date: 20110228
  Transmission Date: 20110831
  Serious: Yes (Hospitalization)
  Sender: FDA-Public Use
  Company Number: 023629

PATIENT
  Sex: Female
  Weight: 58 kg

DRUGS (2)
  1. KEPPRA [Suspect]
     Indication: EPILEPSY
     Dosage: 1000 MG, BID, ORAL
     Route: 048
     Dates: start: 20080101
  2. YASMIN [Concomitant]

REACTIONS (5)
  - DELUSION [None]
  - HOSTILITY [None]
  - NERVOUSNESS [None]
  - DEPRESSION [None]
  - AGGRESSION [None]
